FAERS Safety Report 11560323 (Version 2)
Quarter: 2015Q4

REPORT INFORMATION
  Report Type: Spontaneous
  Country: US (occurrence: US)
  Receive Date: 20150916
  Receipt Date: 20151110
  Transmission Date: 20160304
  Serious: No
  Sender: FDA-Public Use
  Company Number: US-ELI_LILLY_AND_COMPANY-US200809003896

PATIENT
  Age: 76 Year
  Sex: Female

DRUGS (3)
  1. ACTONEL [Concomitant]
     Active Substance: RISEDRONATE SODIUM
  2. FORTEO [Suspect]
     Active Substance: TERIPARATIDE
     Dosage: 20 UG, QD
     Route: 065
     Dates: start: 20080726, end: 20080925
  3. FORTEO [Suspect]
     Active Substance: TERIPARATIDE
     Dosage: 20 UG, QD
     Route: 065
     Dates: start: 20081028, end: 2010

REACTIONS (21)
  - Walking aid user [Unknown]
  - Loose tooth [Unknown]
  - Gingival disorder [Unknown]
  - Musculoskeletal discomfort [Not Recovered/Not Resolved]
  - Neck pain [Unknown]
  - Migraine [Unknown]
  - Spinal pain [Unknown]
  - Pain in extremity [Not Recovered/Not Resolved]
  - Musculoskeletal pain [Unknown]
  - Bone disorder [Unknown]
  - Bone loss [Unknown]
  - Foot deformity [Not Recovered/Not Resolved]
  - Pain [Not Recovered/Not Resolved]
  - Contusion [Unknown]
  - Back pain [Unknown]
  - Dyspepsia [Unknown]
  - Bone density abnormal [Unknown]
  - Chest pain [Unknown]
  - Necrosis [Unknown]
  - Osteitis [Unknown]
  - Injection site haemorrhage [Unknown]

NARRATIVE: CASE EVENT DATE: 200808
